FAERS Safety Report 9263255 (Version 1)
Quarter: 2013Q2

REPORT INFORMATION
  Report Type: Spontaneous
  Country: ES (occurrence: ES)
  Receive Date: 20130430
  Receipt Date: 20130430
  Transmission Date: 20140414
  Serious: Yes (Other)
  Sender: FDA-Public Use
  Company Number: ES-VERTEX PHARMACEUTICALS INC-2013-005544

PATIENT
  Sex: Female

DRUGS (3)
  1. INCIVO [Suspect]
     Indication: HEPATITIS C
     Route: 048
     Dates: start: 20130204, end: 20130404
  2. PEGASYS [Suspect]
     Indication: HEPATITIS C
     Dosage: DOSAGE FORM: INJECTION
     Route: 058
     Dates: start: 20130204, end: 20130411
  3. RIBAVIRIN [Suspect]
     Indication: HEPATITIS C
     Dosage: DOSAGE FORM: UNSPECIFIED
     Route: 048
     Dates: start: 20130204, end: 20130406

REACTIONS (2)
  - Rash generalised [Recovered/Resolved]
  - Anaemia [Unknown]
